FAERS Safety Report 4455140-8 (Version None)
Quarter: 2004Q3

REPORT INFORMATION
  Report Type: 
  Country: None (occurrence: None)
  Receive Date: 20040907
  Receipt Date: 20040827
  Transmission Date: 20050211
  Serious: Yes (Other)
  Sender: FDA-Public Use
  Company Number: CH-GLAXOSMITHKLINE-B0344105A

PATIENT
  Age: 34 Year
  Sex: Male

DRUGS (2)
  1. DEROXAT [Suspect]
     Indication: SOCIAL PHOBIA
     Dosage: 10MG TWICE PER DAY
     Route: 048
     Dates: start: 20010101
  2. SOTALEX [Concomitant]
     Indication: SUPRAVENTRICULAR TACHYCARDIA
     Dosage: 160MG PER DAY
     Route: 048

REACTIONS (8)
  - ALANINE AMINOTRANSFERASE INCREASED [None]
  - BLOOD ALKALINE PHOSPHATASE INCREASED [None]
  - GAMMA-GLUTAMYLTRANSFERASE INCREASED [None]
  - GRAND MAL CONVULSION [None]
  - HEPATIC ENZYME INCREASED [None]
  - PETIT MAL EPILEPSY [None]
  - SUPRAVENTRICULAR TACHYCARDIA [None]
  - SYNCOPE [None]
